FAERS Safety Report 6451759-3 (Version None)
Quarter: 2009Q4

REPORT INFORMATION
  Report Type: 
  Country: None (occurrence: None)
  Receive Date: 20091123
  Receipt Date: 20091117
  Transmission Date: 20100525
  Serious: Yes (Other)
  Sender: FDA-Public Use
  Company Number: US-JNJFOC-20091105557

PATIENT
  Sex: Female
  Weight: 90.72 kg

DRUGS (3)
  1. EXTRA STRENGTH TYLENOL [Suspect]
     Route: 048
  2. EXTRA STRENGTH TYLENOL [Suspect]
     Indication: HEADACHE
     Route: 048
  3. MANY OTHER UNSPECIFIED MEDICATIONS [Concomitant]

REACTIONS (6)
  - CEREBROVASCULAR ACCIDENT [None]
  - FALL [None]
  - FATIGUE [None]
  - HEADACHE [None]
  - INCORRECT DOSE ADMINISTERED [None]
  - SOMNOLENCE [None]
